FAERS Safety Report 8392954-6 (Version None)
Quarter: 2012Q2

REPORT INFORMATION
  Report Type: 
  Country: None (occurrence: None)
  Receive Date: 20120529
  Receipt Date: 20120522
  Transmission Date: 20120825
  Serious: Yes (Other)
  Sender: FDA-Public Use
  Company Number: US-BAYER-2012-051548

PATIENT
  Age: 89 Year
  Sex: Female
  Weight: 48.526 kg

DRUGS (11)
  1. RESTASIS [Concomitant]
  2. METOPROLOL TARTRATE [Concomitant]
  3. VITAMIN D [Concomitant]
  4. ASPIRIN [Concomitant]
     Indication: ISCHAEMIC HEART DISEASE PROPHYLAXIS
     Dosage: UNK
     Route: 048
  5. HYDROCHLOROTHIAZIDE [Concomitant]
  6. LUMIGAN [Concomitant]
  7. MORAZAPAN [Concomitant]
  8. ASPIRIN [Suspect]
     Indication: ISCHAEMIC HEART DISEASE PROPHYLAXIS
     Dosage: 325 MG, QD
     Route: 048
     Dates: start: 20080101, end: 20080101
  9. PHILLIPS' LAXATIVE DIETARY SUPPLEMENT [Concomitant]
     Indication: CONSTIPATION
     Dosage: 3 DF, QD
     Route: 048
  10. MICARDIS [Concomitant]
  11. ZOLPIDEM TARTRATE [Concomitant]

REACTIONS (1)
  - EYE HAEMORRHAGE [None]
